FAERS Safety Report 15228196 (Version 1)
Quarter: 2018Q3

REPORT INFORMATION
  Report Type: Spontaneous
  Country: US (occurrence: US)
  Receive Date: 20180706
  Receipt Date: 20180706
  Transmission Date: 20181010
  Serious: Yes (Hospitalization)
  Sender: FDA-Public Use
  Company Number: None

PATIENT
  Age: 46 Year
  Sex: Female
  Weight: 117 kg

DRUGS (5)
  1. PROPRANOLOL [Concomitant]
     Active Substance: PROPRANOLOL HYDROCHLORIDE
  2. ADVIL [Concomitant]
     Active Substance: IBUPROFEN
  3. TYLENOL PM [Suspect]
     Active Substance: ACETAMINOPHEN\DIPHENHYDRAMINE
     Indication: MIGRAINE
     Route: 048
  4. MAXALT [Concomitant]
     Active Substance: RIZATRIPTAN BENZOATE
  5. PRILOSEC [Concomitant]
     Active Substance: OMEPRAZOLE MAGNESIUM

REACTIONS (10)
  - Vomiting [None]
  - Diarrhoea [None]
  - Blood pressure increased [None]
  - Hyperhidrosis [None]
  - Head discomfort [None]
  - Haematochezia [None]
  - Dizziness [None]
  - Migraine [None]
  - Blood potassium decreased [None]
  - Dehydration [None]

NARRATIVE: CASE EVENT DATE: 20180703
